FAERS Safety Report 6806899-3 (Version None)
Quarter: 2010Q2

REPORT INFORMATION
  Report Type: 
  Country: None (occurrence: None)
  Receive Date: 20100629
  Receipt Date: 20080529
  Transmission Date: 20101027
  Serious: No
  Sender: FDA-Public Use
  Company Number: US-PFIZER INC-2008031725

PATIENT
  Age: 64 Year
  Sex: Male

DRUGS (9)
  1. CARDURA [Suspect]
     Indication: HYPERTENSION
     Route: 048
     Dates: start: 20080219, end: 20080301
  2. AMLODIPINE [Concomitant]
  3. ENALAPRIL MALEATE [Concomitant]
  4. METOPROLOL [Concomitant]
  5. COLCHICINE [Concomitant]
  6. TRAZODONE HYDROCHLORIDE [Concomitant]
  7. VIAGRA [Concomitant]
  8. ACETYLSALICYLIC ACID [Concomitant]
  9. MULTI-VITAMINS [Concomitant]

REACTIONS (3)
  - GOUT [None]
  - INFLAMMATION [None]
  - PAIN [None]
